FAERS Safety Report 7561253-4 (Version None)
Quarter: 2011Q2

REPORT INFORMATION
  Report Type: 
  Country: None (occurrence: None)
  Receive Date: 20110621
  Receipt Date: 20110615
  Transmission Date: 20111010
  Serious: Yes (Other)
  Sender: FDA-Public Use
  Company Number: GB-B.I. PHARMACEUTICALS,INC./RIDGEFIELD-2011-UK-00576UK

PATIENT
  Sex: Female

DRUGS (9)
  1. PRADAXA [Suspect]
     Indication: EMBOLISM VENOUS
     Dosage: 220 MG
     Dates: end: 20110610
  2. ACETAMINOPHEN [Concomitant]
  3. DICLOFENAC SODIUM [Concomitant]
  4. SYMBICORT [Concomitant]
     Route: 055
  5. OMEPRAZOLE [Concomitant]
  6. ONDANSETRON [Concomitant]
  7. BENDROFLUMETHIAZIDE [Concomitant]
  8. LOSARTAN POTASSIUM [Concomitant]
  9. TRAMADOL HCL [Concomitant]

REACTIONS (1)
  - DEEP VEIN THROMBOSIS [None]
